FAERS Safety Report 8571546-X (Version None)
Quarter: 2012Q3

REPORT INFORMATION
  Report Type: 
  Country: None (occurrence: None)
  Receive Date: 20120806
  Receipt Date: 20120730
  Transmission Date: 20120928
  Serious: Yes (Other)
  Sender: FDA-Public Use
  Company Number: PHHY2012JP066535

PATIENT
  Age: 29 Year
  Sex: Female

DRUGS (5)
  1. VALPROIC ACID [Suspect]
     Indication: EPILEPSY
     Route: 048
  2. CLOBAZAM [Suspect]
     Indication: EPILEPSY
     Route: 048
  3. TOPIRAMATE [Suspect]
     Indication: EPILEPSY
     Route: 048
  4. CARBAMAZEPINE [Suspect]
     Indication: EPILEPSY
     Route: 048
  5. LAMOTRIGINE [Suspect]
     Indication: EPILEPSY
     Route: 048

REACTIONS (1)
  - OSTEOMALACIA [None]
